FAERS Safety Report 8942750 (Version 1)
Quarter: 2012Q4

REPORT INFORMATION
  Report Type: 
  Country: US (occurrence: US)
  Receive Date: 20121204
  Receipt Date: 20121204
  Transmission Date: 20130627
  Serious: Yes (Hospitalization, Other)
  Sender: FDA-Public Use
  Company Number: US-BAYER-2012-125832

PATIENT
  Age: 37 Year
  Sex: Female

DRUGS (3)
  1. YASMIN [Suspect]
  2. ZARAH [Suspect]
  3. PRILOSEC [Concomitant]

REACTIONS (2)
  - Cholecystitis chronic [None]
  - Portal vein thrombosis [Recovered/Resolved]
